FAERS Safety Report 20940503 (Version 2)
Quarter: 2022Q2

REPORT INFORMATION
  Report Type: Spontaneous
  Country: US (occurrence: US)
  Receive Date: 20220609
  Receipt Date: 20220625
  Transmission Date: 20220721
  Serious: Yes (Other)
  Sender: FDA-Public Use
  Company Number: US-TEVA-2022-US-2043617

PATIENT
  Age: 64 Year
  Sex: Female

DRUGS (6)
  1. DOXORUBICIN [Suspect]
     Active Substance: DOXORUBICIN
     Indication: Phyllodes tumour
     Route: 065
  2. DOXORUBICIN [Suspect]
     Active Substance: DOXORUBICIN
     Indication: Breast cancer
  3. DACARBAZINE [Suspect]
     Active Substance: DACARBAZINE
     Indication: Phyllodes tumour
     Route: 065
  4. DACARBAZINE [Suspect]
     Active Substance: DACARBAZINE
     Indication: Breast cancer
  5. PALBOCICLIB [Suspect]
     Active Substance: PALBOCICLIB
     Indication: Phyllodes tumour
     Dosage: 125MG DAILY FOR THREE WEEKS ON AND ONE WEEK OFF.
  6. PALBOCICLIB [Suspect]
     Active Substance: PALBOCICLIB
     Indication: Breast cancer

REACTIONS (2)
  - Henoch-Schonlein purpura [Recovered/Resolved]
  - Therapy non-responder [Unknown]
